FAERS Safety Report 5526997-4 (Version None)
Quarter: 2007Q4

REPORT INFORMATION
  Report Type: 
  Country: None (occurrence: None)
  Receive Date: 20071123
  Receipt Date: 20070215
  Transmission Date: 20080405
  Serious: Yes (Other)
  Sender: FDA-Public Use
  Company Number: 2007MP000498

PATIENT

DRUGS (4)
  1. GLIADEL [Suspect]
     Indication: MALIGNANT GLIOMA
     Dosage: X1;ICER
  2. GLIADEL [Suspect]
     Indication: RECURRENT CANCER
     Dosage: X1;ICER
  3. 06- BENZYLGUANINE [Suspect]
     Indication: MALIGNANT GLIOMA
     Dosage: IV
     Route: 042
  4. 06- BENZYLGUANINE [Suspect]
     Indication: RECURRENT CANCER
     Dosage: IV
     Route: 042

REACTIONS (9)
  - ATAXIA [None]
  - CEREBRAL HAEMORRHAGE [None]
  - CONFUSIONAL STATE [None]
  - CONVULSION [None]
  - DRUG ADMINISTRATION ERROR [None]
  - HEADACHE [None]
  - INFECTION [None]
  - INTRACRANIAL HYPOTENSION [None]
  - INTRACRANIAL PRESSURE INCREASED [None]
